FAERS Safety Report 10238051 (Version 1)
Quarter: 2014Q2

REPORT INFORMATION
  Report Type: Spontaneous
  Country: DE (occurrence: DE)
  Receive Date: 20140616
  Receipt Date: 20140616
  Transmission Date: 20141212
  Serious: Yes (Hospitalization)
  Sender: FDA-Public Use
  Company Number: DE-ELI_LILLY_AND_COMPANY-DE201406001170

PATIENT
  Age: 48 Year
  Sex: Female

DRUGS (15)
  1. ZYPREXA [Suspect]
     Indication: PRODUCT USED FOR UNKNOWN INDICATION
     Dosage: 5 MG, QD
     Route: 048
     Dates: start: 20140109, end: 20140110
  2. ZYPREXA [Suspect]
     Dosage: 7.5 MG, QD
     Route: 048
     Dates: start: 20140110, end: 20140111
  3. ZYPREXA [Suspect]
     Dosage: 10 MG, QD
     Route: 048
     Dates: start: 20140111, end: 20140119
  4. ZYPREXA [Suspect]
     Dosage: 12.5 MG, QD
     Route: 048
     Dates: start: 20140120, end: 20140122
  5. ZYPREXA [Suspect]
     Dosage: 7.5 MG, QD
     Route: 048
     Dates: start: 20140123, end: 20140125
  6. ZYPREXA [Suspect]
     Dosage: 5 MG, QD
     Route: 048
     Dates: start: 20140126, end: 20140127
  7. ZYPREXA [Suspect]
     Dosage: 2.5 MG, QD
     Route: 048
     Dates: start: 20140128
  8. TAVOR [Suspect]
     Indication: PRODUCT USED FOR UNKNOWN INDICATION
     Dosage: 1.5 MG, QD
     Route: 048
     Dates: start: 20140111, end: 20140125
  9. TAVOR [Suspect]
     Dosage: 1 MG, QD
     Route: 048
     Dates: start: 20140126, end: 20140129
  10. TAVOR [Suspect]
     Dosage: 0.5 MG, QD
     Route: 048
     Dates: start: 20140130, end: 20140204
  11. TAVOR [Suspect]
     Dosage: 0.25 MG, QD
     Route: 048
     Dates: start: 20140205, end: 20140206
  12. CIPRALEX [Suspect]
     Indication: PRODUCT USED FOR UNKNOWN INDICATION
     Dosage: 5 MG, QD
     Route: 048
     Dates: start: 20140114, end: 20140116
  13. CIPRALEX [Suspect]
     Dosage: 10 MG, QD
     Route: 048
     Dates: start: 20140117, end: 20140122
  14. CIPRALEX [Suspect]
     Dosage: 15 MG, QD
     Route: 048
     Dates: start: 20140123, end: 20140203
  15. CIPRALEX [Suspect]
     Dosage: 20 MG, QD
     Route: 048
     Dates: start: 20140204

REACTIONS (11)
  - Urinary hesitation [Recovered/Resolved]
  - Leukocytosis [Unknown]
  - Bladder disorder [Unknown]
  - Abdominal discomfort [Unknown]
  - Pain [Unknown]
  - Gastrointestinal sounds abnormal [Unknown]
  - Paruresis [Unknown]
  - Urinary retention [Unknown]
  - Urinary incontinence [Unknown]
  - Abdominal distension [Unknown]
  - Constipation [Unknown]
